FAERS Safety Report 4369126-5 (Version None)
Quarter: 2004Q2

REPORT INFORMATION
  Report Type: 
  Country: None (occurrence: None)
  Receive Date: 20040527
  Receipt Date: 20040519
  Transmission Date: 20050107
  Serious: Yes (Other)
  Sender: FDA-Public Use
  Company Number: 2004033841

PATIENT
  Age: 88 Year
  Sex: Female
  Weight: 47.6277 kg

DRUGS (11)
  1. LIPITOR [Suspect]
     Indication: BLOOD CHOLESTEROL INCREASED
     Dosage: (1 IN 1 D), ORAL
     Route: 048
     Dates: start: 19970101
  2. RAMIPRIL [Concomitant]
  3. DYAZIDE [Concomitant]
  4. ISRADIPINE (ISRADIPINE) [Concomitant]
  5. METOPROLOL (METOPROLOL) [Concomitant]
  6. OLMESARTAN MEDOXOMIL (OLMESARTAN MEDOXOMIL) [Concomitant]
  7. FISH OIL (FISH OIL) [Concomitant]
  8. CHONDROITIN/GLUCOSAMINE (CHONDROITIN, GLUCOSAMINE) [Concomitant]
  9. MULTIVITAMINS (ASCORBIC ACID, ERGOCALCIFEROL, FOLIC  ACID,  NICOTINAMI [Concomitant]
  10. CALCIUM (CALCIUM) [Concomitant]
  11. ACETYLSALICYLIC ACID SRT [Concomitant]

REACTIONS (4)
  - ARTHRALGIA [None]
  - ASTHENIA [None]
  - DRUG EFFECT DECREASED [None]
  - PAIN IN EXTREMITY [None]
